FAERS Safety Report 17473756 (Version 1)
Quarter: 2020Q1

REPORT INFORMATION
  Report Type: Spontaneous
  Country: US (occurrence: US)
  Receive Date: 20200228
  Receipt Date: 20200228
  Transmission Date: 20200409
  Serious: Yes (Other)
  Sender: FDA-Public Use
  Company Number: US-ASTRAZENECA-2020SE27732

PATIENT
  Sex: Male
  Weight: 58.3 kg

DRUGS (1)
  1. IMFINZI [Suspect]
     Active Substance: DURVALUMAB
     Indication: NON-SMALL CELL LUNG CANCER
     Dosage: UNKNOWN, EVERY OTHER WEEK
     Route: 042
     Dates: start: 201908

REACTIONS (4)
  - Weight increased [Unknown]
  - Cardiac valve disease [Unknown]
  - Dysphagia [Recovered/Resolved]
  - Weight decreased [Unknown]
